FAERS Safety Report 10441519 (Version 2)
Quarter: 2014Q3

REPORT INFORMATION
  Report Type: Report from Study
  Country: US (occurrence: US)
  Receive Date: 20140908
  Receipt Date: 20140908
  Transmission Date: 20150326
  Serious: Yes (Hospitalization)
  Sender: FDA-Public Use
  Company Number: US-ABBVIE-14K-163-1251754-00

PATIENT
  Age: 28 Year
  Sex: Male

DRUGS (8)
  1. HUMIRA [Suspect]
     Active Substance: ADALIMUMAB
     Indication: CROHN^S DISEASE
     Dates: start: 20140617, end: 20140617
  2. VITAMIN D [Concomitant]
     Active Substance: CHOLECALCIFEROL
     Indication: VITAMIN D DECREASED
  3. HUMIRA [Suspect]
     Active Substance: ADALIMUMAB
     Dosage: EVERY TUESDAY AT 11 PM
     Dates: start: 201407
  4. PENTASA [Concomitant]
     Active Substance: MESALAMINE
     Indication: CROHN^S DISEASE
  5. HUMIRA [Suspect]
     Active Substance: ADALIMUMAB
     Dates: start: 2014, end: 2014
  6. IRON [Concomitant]
     Active Substance: IRON
     Indication: BLOOD IRON DECREASED
  7. HYOSCYAMINE [Concomitant]
     Active Substance: HYOSCYAMINE
     Indication: PAIN
     Dosage: 1 TO 2 EVERY SIX HOURS
  8. TRAMADOL [Concomitant]
     Active Substance: TRAMADOL
     Indication: CROHN^S DISEASE
     Dosage: AT BEDTIME

REACTIONS (11)
  - Gastrointestinal sounds abnormal [Unknown]
  - Decreased appetite [Unknown]
  - Abdominal distension [Not Recovered/Not Resolved]
  - Injection site pain [Unknown]
  - Intestinal stenosis [Unknown]
  - Abasia [Unknown]
  - Gastrointestinal inflammation [Unknown]
  - Intestinal obstruction [Unknown]
  - Dyspepsia [Not Recovered/Not Resolved]
  - Hepatic cyst [Unknown]
  - Abdominal adhesions [Unknown]

NARRATIVE: CASE EVENT DATE: 201406
